FAERS Safety Report 25421789 (Version 5)
Quarter: 2025Q3

REPORT INFORMATION
  Report Type: Report from Study
  Country: CA (occurrence: CA)
  Receive Date: 20250611
  Receipt Date: 20250814
  Transmission Date: 20251021
  Serious: Yes (Other)
  Sender: TAKEDA
  Company Number: CA-TAKEDA-2024TUS120610

PATIENT
  Sex: Male

DRUGS (3)
  1. VEDOLIZUMAB [Suspect]
     Active Substance: VEDOLIZUMAB
     Indication: Immune-mediated enterocolitis
  2. VEDOLIZUMAB [Suspect]
     Active Substance: VEDOLIZUMAB
     Indication: Immune-mediated enterocolitis
     Dosage: 108 MILLIGRAM, Q2WEEKS
     Dates: start: 20250107
  3. PREDNISONE [Concomitant]
     Active Substance: PREDNISONE

REACTIONS (6)
  - Lung neoplasm malignant [Unknown]
  - Abdominal pain upper [Unknown]
  - Drug ineffective [Unknown]
  - Infrequent bowel movements [Unknown]
  - Product storage error [Unknown]
  - Abdominal pain [Unknown]
